FAERS Safety Report 4531533-5 (Version None)
Quarter: 2004Q4

REPORT INFORMATION
  Report Type: 
  Country: None (occurrence: None)
  Receive Date: 20041220
  Receipt Date: 20041208
  Transmission Date: 20050328
  Serious: Yes (Death, Hospitalization)
  Sender: FDA-Public Use
  Company Number: JP-JNJFOC-20041005205

PATIENT
  Sex: Male
  Weight: 72 kg

DRUGS (11)
  1. REMICADE [Suspect]
     Route: 042
  2. REMICADE [Suspect]
     Route: 042
  3. REMICADE [Suspect]
     Indication: RHEUMATOID ARTHRITIS
     Route: 042
  4. RHEUMATREX [Suspect]
     Dosage: 2MG CAPSULE
     Route: 049
  5. RHEUMATREX [Suspect]
     Indication: RHEUMATOID ARTHRITIS
     Dosage: 2MG CAPSULE
     Route: 049
  6. METHOTREXATE [Concomitant]
     Dosage: 2.5MG TABLET
     Route: 049
  7. FLUCAM [Concomitant]
     Dosage: 2 CAPSULES (13.5MG CAPSULES).
     Route: 049
  8. ROCALTROL [Concomitant]
     Dosage: 2 TABS
     Route: 049
  9. MARZULENE-S [Concomitant]
     Route: 049
  10. MARZULENE-S [Concomitant]
     Dosage: 2 SACHETS OF 500MG EACH.
     Route: 049
  11. ISCOTIN [Concomitant]
     Dosage: 3 TABLETS 100MG EACH
     Route: 049

REACTIONS (17)
  - ACIDOSIS [None]
  - ANAEMIA [None]
  - BLOOD PRESSURE DECREASED [None]
  - DIFFUSE LARGE B-CELL LYMPHOMA [None]
  - DISSEMINATED INTRAVASCULAR COAGULATION [None]
  - DIVERTICULUM [None]
  - DIVERTICULUM INTESTINAL [None]
  - GASTRIC CANCER STAGE IV WITH METASTASES [None]
  - GASTRIC ULCER [None]
  - LYMPHOMA [None]
  - MALIGNANT NEOPLASM PROGRESSION [None]
  - MELAENA [None]
  - METASTASES TO LIVER [None]
  - MULTI-ORGAN FAILURE [None]
  - RESPIRATORY FAILURE [None]
  - RESTLESSNESS [None]
  - VARICES OESOPHAGEAL [None]
